FAERS Safety Report 6376416-3 (Version None)
Quarter: 2009Q3

REPORT INFORMATION
  Report Type: 
  Country: None (occurrence: None)
  Receive Date: 20090925
  Receipt Date: 20090921
  Transmission Date: 20100115
  Serious: No
  Sender: FDA-Public Use
  Company Number: US-JNJFOC-20090906751

PATIENT
  Sex: Female

DRUGS (2)
  1. DURAGESIC-100 [Suspect]
     Indication: PAIN
     Dosage: 2 PATCHES OF 75 MCG
     Route: 062
     Dates: start: 20000101
  2. LORTAB [Concomitant]
     Indication: PAIN
     Route: 065

REACTIONS (8)
  - APPLICATION SITE DISCOLOURATION [None]
  - FEELING ABNORMAL [None]
  - NAUSEA [None]
  - NECK INJURY [None]
  - NERVOUSNESS [None]
  - PRODUCT QUALITY ISSUE [None]
  - ROAD TRAFFIC ACCIDENT [None]
  - WRONG TECHNIQUE IN DRUG USAGE PROCESS [None]
